FAERS Safety Report 4435525-6 (Version None)
Quarter: 2004Q3

REPORT INFORMATION
  Report Type: 
  Country: None (occurrence: None)
  Receive Date: 20040827
  Receipt Date: 20040806
  Transmission Date: 20050211
  Serious: Yes (Hospitalization, Other)
  Sender: FDA-Public Use
  Company Number: IE-MERCK-0408GBR00075

PATIENT
  Age: 80 Year
  Sex: Female

DRUGS (18)
  1. [THERAPY UNSPECIFIED] [Concomitant]
     Route: 065
  2. ALBUTEROL SULFATE AND IPRATROPIUM BROMIDE [Concomitant]
     Route: 065
  3. FOSAMAX [Concomitant]
     Route: 048
  4. BUDESONIDE [Concomitant]
     Route: 065
  5. CALCIUM CARBONATE [Concomitant]
     Route: 065
  6. CITALOPRAM [Concomitant]
     Route: 065
  7. ESOMEPRAZOLE MAGNESIUM [Concomitant]
     Route: 065
  8. FENTANYL [Concomitant]
     Route: 061
  9. FERROUS SULFATE [Concomitant]
     Route: 065
  10. FLUTICASONE PROPIONATE [Concomitant]
     Route: 065
  11. FUROSEMIDE [Concomitant]
     Route: 065
  12. PIPERACILLIN SODIUM AND TAZOBACTAM SODIUM [Concomitant]
     Route: 065
  13. PRAMIPEXOLE [Concomitant]
     Route: 065
  14. PREDNISOLONE [Concomitant]
     Route: 065
  15. VIOXX [Suspect]
     Indication: PAIN
     Route: 048
     Dates: start: 20040721, end: 20040729
  16. VIOXX [Suspect]
     Indication: PULMONARY EMBOLISM
     Route: 048
     Dates: start: 20040721, end: 20040729
  17. TINZAPARIN SODIUM [Concomitant]
     Route: 065
  18. TRAMADOL HYDROCHLORIDE [Concomitant]
     Route: 065

REACTIONS (1)
  - CRYPTOGENIC ORGANIZING PNEUMONIA [None]
